FAERS Safety Report 4499847-5 (Version None)
Quarter: 2004Q4

REPORT INFORMATION
  Report Type: 
  Country: None (occurrence: None)
  Receive Date: 20041110
  Receipt Date: 20041110
  Transmission Date: 20050328
  Serious: Yes (Death, Life-Threatening, Hospitalization)
  Sender: FDA-Public Use
  Company Number: None

PATIENT
  Age: 58 Year
  Sex: Male
  Weight: 54.4316 kg

DRUGS (1)
  1. PAXIL CR [Suspect]
     Indication: ANXIETY
     Dosage: 12.5 MG 1X DAILY
     Dates: start: 20030829, end: 20030901

REACTIONS (9)
  - ANOREXIA [None]
  - CLOSTRIDIUM COLITIS [None]
  - DECREASED INTEREST [None]
  - HOMICIDAL IDEATION [None]
  - INSOMNIA [None]
  - NAUSEA [None]
  - PERSONALITY CHANGE [None]
  - SUICIDE ATTEMPT [None]
  - WEIGHT DECREASED [None]
